FAERS Safety Report 7201828-5 (Version None)
Quarter: 2010Q4

REPORT INFORMATION
  Report Type: 
  Country: None (occurrence: None)
  Receive Date: 20101229
  Receipt Date: 20101104
  Transmission Date: 20110411
  Serious: Yes (Hospitalization)
  Sender: FDA-Public Use
  Company Number: US-BAYER-201020423NA

PATIENT
  Sex: Female
  Weight: 81.818 kg

DRUGS (11)
  1. YASMIN [Suspect]
     Indication: MENSTRUAL CYCLE MANAGEMENT
     Route: 048
     Dates: start: 20041020, end: 20051129
  2. YASMIN [Suspect]
     Indication: OVARIAN CYST
  3. ASPIRIN [Concomitant]
     Indication: CEREBROVASCULAR ACCIDENT PROPHYLAXIS
     Route: 048
  4. VERAPAMIL SLOW RELEASE [Concomitant]
     Indication: RAYNAUD'S PHENOMENON
     Route: 048
  5. LIPITOR [Concomitant]
     Indication: CEREBROVASCULAR ACCIDENT PROPHYLAXIS
     Route: 048
  6. FERROUS SULFATE [Concomitant]
     Indication: MENSTRUAL DISORDER
     Route: 048
  7. NICODERM [Concomitant]
  8. NIMODIPINE [Concomitant]
  9. FLONASE [Concomitant]
  10. ALLEGRA [Concomitant]
  11. LOVENOX [Concomitant]

REACTIONS (5)
  - APHASIA [None]
  - CEREBRAL INFARCTION [None]
  - DYSARTHRIA [None]
  - HEADACHE [None]
  - ISCHAEMIC STROKE [None]
